FAERS Safety Report 25152823 (Version 1)
Quarter: 2025Q2

REPORT INFORMATION
  Report Type: Spontaneous
  Country: CN (occurrence: CN)
  Receive Date: 20250403
  Receipt Date: 20250403
  Transmission Date: 20250716
  Serious: Yes (Hospitalization)
  Sender: NOVO NORDISK
  Company Number: None

PATIENT
  Age: 42 Year
  Sex: Male
  Weight: 62 kg

DRUGS (1)
  1. VICTOZA [Suspect]
     Active Substance: LIRAGLUTIDE
     Indication: Type 2 diabetes mellitus
     Dosage: 0.6 MG, QD(ONCE EVERY NIGHT)
     Route: 058
     Dates: start: 20250320, end: 20250320

REACTIONS (4)
  - Gastrointestinal disorder [Recovering/Resolving]
  - Abdominal pain [Recovering/Resolving]
  - Nausea [Recovering/Resolving]
  - Vomiting [Recovering/Resolving]

NARRATIVE: CASE EVENT DATE: 20250321
